FAERS Safety Report 22333483 (Version 1)
Quarter: 2023Q2

REPORT INFORMATION
  Report Type: Spontaneous
  Country: US (occurrence: US)
  Receive Date: 20230517
  Receipt Date: 20230517
  Transmission Date: 20230721
  Serious: No
  Sender: FDA-Public Use
  Company Number: US-MYLANLABS-2023M1042221

PATIENT
  Sex: Female
  Weight: 79.38 kg

DRUGS (1)
  1. SEMGLEE (INSULIN GLARGINE-YFGN) [Suspect]
     Active Substance: INSULIN GLARGINE-YFGN
     Indication: Diabetes mellitus
     Dosage: 48 INTERNATIONAL UNIT, BID
     Route: 058

REACTIONS (2)
  - Wrong technique in product usage process [Unknown]
  - Device leakage [Unknown]
